FAERS Safety Report 6784209-8 (Version None)
Quarter: 2010Q2

REPORT INFORMATION
  Report Type: 
  Country: None (occurrence: None)
  Receive Date: 20100622
  Receipt Date: 20100608
  Transmission Date: 20101027
  Serious: Yes (Other)
  Sender: FDA-Public Use
  Company Number: US-ELI_LILLY_AND_COMPANY-US201006004109

PATIENT
  Sex: Female

DRUGS (7)
  1. STRATTERA [Suspect]
     Indication: ATTENTION DEFICIT/HYPERACTIVITY DISORDER
     Dosage: 10 MG, UNK
  2. STRATTERA [Suspect]
     Dosage: 18 MG, UNK
  3. PROZAC [Suspect]
     Indication: PANIC ATTACK
     Dosage: 20 MG, UNK
  4. PROZAC [Suspect]
     Dosage: 40 MG, UNK
  5. XANAX [Concomitant]
     Indication: MENOPAUSAL SYMPTOMS
  6. ESTROGEN NOS [Concomitant]
     Indication: MOOD SWINGS
  7. OTHER ANALGESICS AND ANTIPYRETICS [Concomitant]
     Indication: BACK PAIN
     Route: 050

REACTIONS (10)
  - BRADYKINESIA [None]
  - DISTURBANCE IN ATTENTION [None]
  - DRUG INEFFECTIVE [None]
  - DYSURIA [None]
  - FEAR [None]
  - GRAND MAL CONVULSION [None]
  - HYPERHIDROSIS [None]
  - HYPOREFLEXIA [None]
  - LETHARGY [None]
  - MOOD SWINGS [None]
